FAERS Safety Report 21777914 (Version 1)
Quarter: 2022Q4

REPORT INFORMATION
  Report Type: Report from Study
  Country: US (occurrence: US)
  Receive Date: 20221226
  Receipt Date: 20221226
  Transmission Date: 20230112
  Serious: Yes (Hospitalization, Other)
  Sender: FDA-Public Use
  Company Number: US-ABBVIE-4248772

PATIENT
  Age: 72 Year
  Sex: Female

DRUGS (1)
  1. HUMIRA [Suspect]
     Active Substance: ADALIMUMAB
     Indication: Rheumatoid arthritis
     Dosage: FORM STRENGTH- 40 MG
     Route: 058
     Dates: start: 20180101

REACTIONS (5)
  - Urinary tract infection [Recovering/Resolving]
  - Fine motor skill dysfunction [Unknown]
  - Encephalitis [Unknown]
  - Gait disturbance [Unknown]
  - Dysgraphia [Unknown]

NARRATIVE: CASE EVENT DATE: 20221205
